FAERS Safety Report 23566063 (Version 3)
Quarter: 2024Q1

REPORT INFORMATION
  Report Type: Spontaneous
  Country: US (occurrence: None)
  Receive Date: 20240226
  Receipt Date: 20240315
  Transmission Date: 20240410
  Serious: Yes (Life-Threatening, Hospitalization, Other)
  Sender: FDA-Public Use
  Company Number: 2024A044072

PATIENT
  Age: 29783 Day
  Sex: Male
  Weight: 77.6 kg

DRUGS (3)
  1. TAGRISSO [Suspect]
     Active Substance: OSIMERTINIB
     Indication: Lung carcinoma cell type unspecified stage 0
     Dosage: UNKNOWN
     Route: 048
     Dates: start: 20230828, end: 20240219
  2. TAGRISSO [Suspect]
     Active Substance: OSIMERTINIB
     Indication: Lung carcinoma cell type unspecified stage 0
     Dosage: UNKNOWN
     Route: 048
     Dates: start: 20240219
  3. METOPROLOL [Suspect]
     Active Substance: METOPROLOL
     Route: 048

REACTIONS (10)
  - Rhabdomyolysis [Recovering/Resolving]
  - Renal failure [Unknown]
  - Thrombocytopenia [Unknown]
  - Fibrin D dimer increased [Unknown]
  - Transaminases increased [Unknown]
  - Blood creatine phosphokinase increased [Unknown]
  - Myoglobinuria [Unknown]
  - Lung infiltration [Unknown]
  - Dysphagia [Unknown]
  - Diarrhoea [Unknown]

NARRATIVE: CASE EVENT DATE: 20240218
